FAERS Safety Report 9648332 (Version 2)
Quarter: 2013Q4

REPORT INFORMATION
  Report Type: Spontaneous
  Country: IT (occurrence: IT)
  Receive Date: 20131028
  Receipt Date: 20131028
  Transmission Date: 20140711
  Serious: Yes (Other)
  Sender: FDA-Public Use
  Company Number: IT-ROCHE-1290983

PATIENT
  Age: 88 Year
  Sex: Female
  Weight: 44 kg

DRUGS (4)
  1. LUCENTIS [Suspect]
     Indication: MACULOPATHY
     Route: 050
     Dates: start: 20130920, end: 20130920
  2. LUCENTIS [Suspect]
     Indication: MACULOPATHY
  3. ENAPREN [Concomitant]
     Indication: HYPERTENSION
  4. PLAVIX [Concomitant]
     Indication: HYPERTENSIVE CARDIOMYOPATHY
     Route: 065
     Dates: start: 2012, end: 2013

REACTIONS (1)
  - Visual acuity reduced [Not Recovered/Not Resolved]
